FAERS Safety Report 8392337-9 (Version None)
Quarter: 2012Q2

REPORT INFORMATION
  Report Type: 
  Country: None (occurrence: None)
  Receive Date: 20120529
  Receipt Date: 20120523
  Transmission Date: 20120825
  Serious: Yes (Death, Hospitalization)
  Sender: FDA-Public Use
  Company Number: US-CELGENEUS-163-21880-12052760

PATIENT
  Age: 63 Year
  Sex: Male

DRUGS (7)
  1. REVLIMID [Suspect]
     Indication: MULTIPLE MYELOMA
     Dosage: 10 MILLIGRAM
     Route: 048
     Dates: start: 20090901, end: 20120501
  2. LASIX [Concomitant]
     Route: 065
  3. ALBUTEROL [Concomitant]
     Route: 065
  4. DECADRON [Concomitant]
     Route: 065
  5. COUMADIN [Concomitant]
     Route: 065
  6. ZOFRAN [Concomitant]
     Route: 065
  7. AMBIEN [Concomitant]
     Route: 065

REACTIONS (3)
  - INTESTINAL CONGESTION [None]
  - DEATH [None]
  - CARDIAC FAILURE CONGESTIVE [None]
